FAERS Safety Report 6507157-7 (Version None)
Quarter: 2009Q4

REPORT INFORMATION
  Report Type: 
  Country: None (occurrence: None)
  Receive Date: 20091127
  Receipt Date: 20090622
  Transmission Date: 20100525
  Serious: Yes (Other)
  Sender: FDA-Public Use
  Company Number: US200906000274

PATIENT
  Age: 65 Year
  Sex: Female
  Weight: 108.8 kg

DRUGS (20)
  1. BYETTA [Suspect]
     Indication: TYPE 2 DIABETES MELLITUS
     Dosage: 5 UG, 2/D, SUBCUTANEOUS;10 UG, 2/D, SUBCUTANEOUS
     Route: 058
     Dates: start: 20060101, end: 20060101
  2. BYETTA [Suspect]
     Indication: TYPE 2 DIABETES MELLITUS
     Dosage: 5 UG, 2/D, SUBCUTANEOUS;10 UG, 2/D, SUBCUTANEOUS
     Route: 058
     Dates: start: 20090501, end: 20090101
  3. BYETTA [Suspect]
     Indication: TYPE 2 DIABETES MELLITUS
     Dosage: 5 UG, 2/D, SUBCUTANEOUS;10 UG, 2/D, SUBCUTANEOUS
     Route: 058
     Dates: start: 20060101, end: 20090501
  4. BYETTA [Suspect]
     Indication: TYPE 2 DIABETES MELLITUS
     Dosage: 5 UG, 2/D, SUBCUTANEOUS;10 UG, 2/D, SUBCUTANEOUS
     Route: 058
     Dates: start: 20090101
  5. BYETTA [Suspect]
  6. BYETTA [Suspect]
  7. ACTOS [Concomitant]
  8. AMARYL [Concomitant]
  9. VALSARTAN [Concomitant]
  10. NEXIUM [Concomitant]
  11. CANTIL (MEPENZOLATE BROMIDE) [Concomitant]
  12. SINGULAIR [Concomitant]
  13. CARAFATE [Concomitant]
  14. ZETIA [Concomitant]
  15. PRAVASTATIN [Concomitant]
  16. ENABLEX	/01760401/ (DARIFENACIN) [Concomitant]
  17. XYZAL [Concomitant]
  18. SYMBICORT [Concomitant]
  19. VITAMIN D [Concomitant]
  20. METAMUCIL (PLANTAGO OVATA) [Concomitant]

REACTIONS (6)
  - BLOOD GLUCOSE DECREASED [None]
  - BLOOD GLUCOSE INCREASED [None]
  - BLOOD PRESSURE INCREASED [None]
  - HYPOAESTHESIA [None]
  - MENTAL IMPAIRMENT [None]
  - TREMOR [None]
